FAERS Safety Report 9601065 (Version 2)
Quarter: 2013Q4

REPORT INFORMATION
  Report Type: Spontaneous
  Country: US (occurrence: US)
  Receive Date: 20131004
  Receipt Date: 20131004
  Transmission Date: 20140711
  Serious: No
  Sender: FDA-Public Use
  Company Number: US-AMGEN-USASP2013038784

PATIENT
  Age: 56 Year
  Sex: Male
  Weight: 102.4 kg

DRUGS (2)
  1. ENBREL [Suspect]
     Indication: PSORIASIS
     Dosage: 50 MG, QWK
     Route: 058
     Dates: start: 200904
  2. IBUPROFEN [Concomitant]
     Dosage: 200 MG, UNK

REACTIONS (3)
  - Hypoaesthesia [Unknown]
  - Burning sensation [Unknown]
  - Paraesthesia [Unknown]
